FAERS Safety Report 25157855 (Version 1)
Quarter: 2025Q2

REPORT INFORMATION
  Report Type: Spontaneous
  Country: NL (occurrence: NL)
  Receive Date: 20250403
  Receipt Date: 20250403
  Transmission Date: 20250717
  Serious: Yes (Other)
  Sender: ORGANON
  Company Number: NL-009507513-1906NLD001380

PATIENT
  Age: 66 Year
  Sex: Male
  Weight: 168 kg

DRUGS (1)
  1. ELOCON [Suspect]
     Active Substance: MOMETASONE FUROATE
     Indication: Eczema

REACTIONS (1)
  - Pseudo Cushing^s syndrome [Recovering/Resolving]
